FAERS Safety Report 24636395 (Version 1)
Quarter: 2024Q4

REPORT INFORMATION
  Report Type: Spontaneous
  Country: PL (occurrence: PL)
  Receive Date: 20241119
  Receipt Date: 20241119
  Transmission Date: 20250115
  Serious: Yes (Other)
  Sender: AMGEN
  Company Number: PL-AMGEN-POLSP2024225723

PATIENT
  Age: 72 Year
  Sex: Male

DRUGS (6)
  1. VECTIBIX [Suspect]
     Active Substance: PANITUMUMAB
     Indication: Colorectal cancer metastatic
     Dosage: UNK
     Route: 065
     Dates: start: 20230421
  2. VECTIBIX [Suspect]
     Active Substance: PANITUMUMAB
     Dosage: UNK, DOSE WAS REDUCED TO 90%
     Route: 065
  3. VECTIBIX [Suspect]
     Active Substance: PANITUMUMAB
     Dosage: UNK
     Route: 065
  4. LEUCOVORIN [Concomitant]
     Active Substance: LEUCOVORIN\LEUCOVORIN CALCIUM
     Indication: Colorectal cancer metastatic
     Dosage: UNK
     Dates: start: 20230421
  5. FLUOROURACIL [Concomitant]
     Active Substance: FLUOROURACIL
     Indication: Colorectal cancer metastatic
     Dosage: UNK
     Dates: start: 20230421
  6. IRINOTECAN [Concomitant]
     Active Substance: IRINOTECAN
     Indication: Colorectal cancer metastatic
     Dosage: UNK
     Dates: start: 20230421

REACTIONS (3)
  - Metastases to liver [Unknown]
  - Colorectal cancer metastatic [Unknown]
  - Skin toxicity [Not Recovered/Not Resolved]

NARRATIVE: CASE EVENT DATE: 20240101
